FAERS Safety Report 20703601 (Version 2)
Quarter: 2022Q2

REPORT INFORMATION
  Report Type: Spontaneous
  Country: FR (occurrence: FR)
  Receive Date: 20220413
  Receipt Date: 20220614
  Transmission Date: 20220720
  Serious: Yes (Other)
  Sender: FDA-Public Use
  Company Number: FR-ADVANZ PHARMA-202203002132

PATIENT

DRUGS (13)
  1. HYDROXYCHLOROQUINE [Suspect]
     Active Substance: HYDROXYCHLOROQUINE
     Indication: Rheumatoid arthritis
     Dosage: UNK,  PLAQUENIL
     Route: 065
  2. HYDROXYCHLOROQUINE [Suspect]
     Active Substance: HYDROXYCHLOROQUINE
     Dosage: UNK,  PLAQUENIL (FOR 4 YEARS)
     Route: 065
     Dates: start: 20110717
  3. SALAZOPYRINE [Concomitant]
     Active Substance: SULFASALAZINE
     Indication: Rheumatoid arthritis
     Dosage: UNK
  4. SALAZOPYRINE [Concomitant]
     Active Substance: SULFASALAZINE
     Dosage: REINTRODUCE
     Dates: start: 20110617
  5. PREDNISONE [Concomitant]
     Active Substance: PREDNISONE
     Indication: Rheumatoid arthritis
     Dosage: 2 MG (MORNING AND EVENING)
  6. PREDNISONE [Concomitant]
     Active Substance: PREDNISONE
     Dosage: 3 MG
  7. DAFALGAN [Concomitant]
     Active Substance: ACETAMINOPHEN
     Indication: Rheumatoid arthritis
     Dosage: 3 DOSAGE FORM, QD
  8. RITUXIMAB [Concomitant]
     Active Substance: RITUXIMAB
     Indication: Rheumatoid arthritis
     Dosage: UNK
     Dates: start: 2006, end: 201710
  9. ENBREL [Concomitant]
     Active Substance: ETANERCEPT
     Dosage: UNK (ENBREL AND RESUMPTION OF MTX)
     Dates: start: 2012
  10. METHOTREXATE SODIUM [Concomitant]
     Active Substance: METHOTREXATE SODIUM
     Dosage: 15 MG, WEEKLY
  11. FOLIC ACID [Concomitant]
     Active Substance: FOLIC ACID
     Dosage: 5 MG (5 MG 3 TABLETS  2 DAYS)
  12. ACTONEL [Concomitant]
     Active Substance: RISEDRONATE SODIUM
     Dosage: 35 MG (35 MG 1 TABLET ON WEDNESDAYS FOR 2 YEARS)
  13. CALTRATE WITH VITAMIN D [Concomitant]
     Active Substance: CALCIUM CARBONATE\CHOLECALCIFEROL
     Dosage: 600 MG

REACTIONS (2)
  - Abortion spontaneous [Not Recovered/Not Resolved]
  - Maternal exposure during pregnancy [Unknown]
